FAERS Safety Report 25398910 (Version 1)
Quarter: 2025Q2

REPORT INFORMATION
  Report Type: Report from Study
  Country: MX (occurrence: MX)
  Receive Date: 20250605
  Receipt Date: 20250605
  Transmission Date: 20250717
  Serious: Yes (Other)
  Sender: ABBVIE
  Company Number: MX-ABBOTT-2025A-1399546

PATIENT
  Age: 53 Year
  Sex: Male
  Weight: 55 kg

DRUGS (10)
  1. CREON [Suspect]
     Active Substance: PANCRELIPASE AMYLASE\PANCRELIPASE LIPASE\PANCRELIPASE PROTEASE
     Indication: Pancreatitis chronic
     Dosage: 7 PILLS A DAY (2 IN THE MORNING, 2 IN THE AFTERNOON, 2 AT NIGHT, AND 1 AT COLLATION)?25,000, 300 MG
     Route: 048
     Dates: start: 202503
  2. CREON [Suspect]
     Active Substance: PANCRELIPASE AMYLASE\PANCRELIPASE LIPASE\PANCRELIPASE PROTEASE
     Indication: Pancreatitis chronic
     Dosage: 4 PILLS A DAY (1 IN THE MORNING, 2 IN THE AFTERNOON, AND 1 AT NIGHT)?25,000, 300 MG
     Route: 048
     Dates: start: 2021, end: 202503
  3. NEUROBION [Concomitant]
     Active Substance: CYANOCOBALAMIN\PYRIDOXINE\THIAMINE
     Indication: Colitis microscopic
     Dosage: 1 INJECTION EVERY 8 DAYS (3 INJECTIONS TOTAL)
  4. CYANOCOBALAMIN\FOLIC ACID\PYRIDOXINE HYDROCHLORIDE [Concomitant]
     Active Substance: CYANOCOBALAMIN\FOLIC ACID\PYRIDOXINE HYDROCHLORIDE
     Indication: Colitis microscopic
     Route: 048
  5. Histofil [Concomitant]
     Indication: Colitis microscopic
     Dosage: 1 PILL DAILY WITHOUT DISCONTINUING
     Route: 048
  6. CHOLESTYRAMINE [Concomitant]
     Active Substance: CHOLESTYRAMINE
     Indication: Colitis microscopic
     Dosage: 1 SACHET EVERY 12 HOURS AFTER BREAKFAST AND DINNER
     Route: 048
  7. PREGABALIN [Concomitant]
     Active Substance: PREGABALIN
     Indication: Diabetes mellitus
     Dosage: 1 CAPSULE DAILY AT 8 AT NIGHT
     Route: 048
  8. Cortiment [Concomitant]
     Indication: Colitis microscopic
     Dosage: 1 CAPSULE DAILY
     Route: 048
  9. TOUJEO [Concomitant]
     Active Substance: INSULIN GLARGINE
     Indication: Diabetes mellitus
     Dosage: AT 9 IN THE MORNING
  10. SUCRALFATE [Concomitant]
     Active Substance: SUCRALFATE
     Indication: Colitis microscopic
     Dosage: 1 PILL EVERY 12 HOURS
     Route: 048

REACTIONS (4)
  - Colitis microscopic [Unknown]
  - Diarrhoea [Not Recovered/Not Resolved]
  - Weight decreased [Recovering/Resolving]
  - Pancreatic disorder [Unknown]

NARRATIVE: CASE EVENT DATE: 20250301
